FAERS Safety Report 25428706 (Version 1)
Quarter: 2025Q2

REPORT INFORMATION
  Report Type: Spontaneous
  Country: US (occurrence: None)
  Receive Date: 20250612
  Receipt Date: 20250612
  Transmission Date: 20250717
  Serious: No
  Sender: FDA-CTU
  Company Number: None

PATIENT
  Age: 67 Year
  Sex: Male
  Weight: 76.2 kg

DRUGS (8)
  1. VALACYCLOVIR HYDROCHLORIDE [Suspect]
     Active Substance: VALACYCLOVIR HYDROCHLORIDE
     Indication: Oral herpes
     Dosage: 2 - PILLS EVERY 12 HR MOUTH ?
     Route: 048
     Dates: start: 20250507, end: 20250510
  2. Amlopipine [Concomitant]
  3. TAMSULOSIN [Concomitant]
     Active Substance: TAMSULOSIN
  4. VITAMIN D3 [Concomitant]
     Active Substance: CHOLECALCIFEROL
  5. VITAMIN C [Concomitant]
     Active Substance: ASCORBIC ACID
  6. CENTRON MEN [Concomitant]
  7. VALSARTAN [Concomitant]
     Active Substance: VALSARTAN
  8. CINNAMON [Concomitant]
     Active Substance: CINNAMON

REACTIONS (7)
  - Headache [None]
  - Muscle spasms [None]
  - Myalgia [None]
  - Muscle spasms [None]
  - Diarrhoea [None]
  - Micturition urgency [None]
  - Renal pain [None]

NARRATIVE: CASE EVENT DATE: 20250507
